FAERS Safety Report 7685613 (Version 4)
Quarter: 2013Q3

REPORT INFORMATION
  Report Type: Report from Study
  Country: US (occurrence: US)
  Receive Date: 20101129
  Receipt Date: 20130924
  Transmission Date: 20140515
  Serious: Yes (Other)
  Sender: FDA-Public Use
  Company Number: US-ROCHE-743676

PATIENT
  Sex: 0

DRUGS (1)
  1. BEVACIZUMAB [Suspect]
     Indication: MYELOFIBROSIS
     Dosage: ON DAY 1
     Route: 042

REACTIONS (4)
  - Liver function test abnormal [Unknown]
  - Bone marrow failure [Unknown]
  - Pain [Unknown]
  - Diarrhoea [Unknown]
